FAERS Safety Report 4817457-4 (Version None)
Quarter: 2005Q4

REPORT INFORMATION
  Report Type: 
  Country: None (occurrence: None)
  Receive Date: 20051101
  Receipt Date: 20050928
  Transmission Date: 20060501
  Serious: Yes (Disabling)
  Sender: FDA-Public Use
  Company Number: ES-MERCK-0509ESP00043

PATIENT
  Age: 57 Year
  Sex: Female

DRUGS (3)
  1. VIOXX [Suspect]
     Indication: OSTEOARTHRITIS
     Route: 065
  2. VIOXX [Suspect]
     Route: 065
  3. VIOXX [Suspect]
     Route: 065

REACTIONS (9)
  - ASTHMA [None]
  - GASTROOESOPHAGEAL REFLUX DISEASE [None]
  - HIATUS HERNIA [None]
  - HYPERTENSION [None]
  - ISCHAEMIC CARDIOMYOPATHY [None]
  - NEPHROLITHIASIS [None]
  - OSTEOARTHRITIS [None]
  - RESPIRATORY TRACT INFECTION [None]
  - TACHYCARDIA [None]
